FAERS Safety Report 5097221-4 (Version None)
Quarter: 2006Q3

REPORT INFORMATION
  Report Type: 
  Country: None (occurrence: None)
  Receive Date: 20060906
  Receipt Date: 20060829
  Transmission Date: 20061208
  Serious: Yes (Hospitalization, Other)
  Sender: FDA-Public Use
  Company Number: GB-GILEAD-2006-0010130

PATIENT
  Sex: Male

DRUGS (1)
  1. TRUVADA [Suspect]
     Dates: start: 20060301

REACTIONS (2)
  - ARTHRALGIA [None]
  - PLATELET COUNT INCREASED [None]
